FAERS Safety Report 10381538 (Version 1)
Quarter: 2014Q1

REPORT INFORMATION
  Report Type: Spontaneous
  Country: US (occurrence: None)
  Receive Date: 20140306
  Receipt Date: 20140306
  Transmission Date: 20141002
  Serious: Yes (Other)
  Sender: FDA-Public Use
  Company Number: 163-21880-13105762

PATIENT
  Age: 78 Year
  Sex: Female
  Weight: 110 kg

DRUGS (9)
  1. REVLIMID [Suspect]
     Indication: PLASMA CELL MYELOMA
     Route: 048
     Dates: start: 20130731
  2. PROTONIX (PANTOPRAZOLE) [Concomitant]
  3. XANAX (ALPRAZOLAM) [Concomitant]
  4. AMBIEN (ZOLPIDEM TARTRATE) [Concomitant]
  5. DEXAMETHASONE [Concomitant]
  6. LEVOFLOXACIN [Concomitant]
  7. VALTREX (VALACICLOVIR HYDROCHLORIDE) [Concomitant]
  8. LEXAPRO ESCITALOPRAM OXALATE) [Concomitant]
  9. REMERON (MIRTAZAPINE) [Concomitant]

REACTIONS (1)
  - Alopecia [None]
